FAERS Safety Report 4594862-5 (Version None)
Quarter: 2005Q1

REPORT INFORMATION
  Report Type: 
  Country: None (occurrence: None)
  Receive Date: 20050224
  Receipt Date: 20030507
  Transmission Date: 20050727
  Serious: Yes (Life-Threatening, Hospitalization, Congenital Anomaly)
  Sender: FDA-Public Use
  Company Number: GXKR2003AU00618

PATIENT
  Sex: Female
  Weight: 398 kg

DRUGS (1)
  1. DICLOFECNAC (NGX) (DICLOFENAC) 50MG [Suspect]
     Dosage: TRANSPLACENTAL
     Route: 064

REACTIONS (13)
  - BRADYCARDIA FOETAL [None]
  - CARDIOMEGALY [None]
  - DILATATION ATRIAL [None]
  - DILATATION VENTRICULAR [None]
  - DRUG EXPOSURE DURING PREGNANCY [None]
  - DUCTUS ARTERIOSUS PREMATURE CLOSURE [None]
  - FOETAL CARDIAC DISORDER [None]
  - FOETAL DISTRESS SYNDROME [None]
  - HYDROPS FOETALIS [None]
  - HYPOTONIA NEONATAL [None]
  - PALLOR [None]
  - PULMONARY HYPERTENSION [None]
  - TACHYCARDIA FOETAL [None]
